FAERS Safety Report 9208251 (Version 1)
Quarter: 2013Q2

REPORT INFORMATION
  Report Type: Other
  Country: GB (occurrence: GB)
  Receive Date: 20130403
  Receipt Date: 20130403
  Transmission Date: 20140414
  Serious: Yes (Hospitalization)
  Sender: FDA-Public Use
  Company Number: GB-ACTAVIS-2013-05423

PATIENT
  Age: 49 Year
  Sex: Female

DRUGS (5)
  1. IBUPROFEN (UNKNOWN) [Suspect]
     Indication: UNEVALUABLE EVENT
     Dosage: DOSAGE FORM: UNSPECIFIED, DAILY DOSE TEXT:
     Route: 065
  2. DIAZEPAM (UNKNOWN) [Suspect]
     Indication: UNEVALUABLE EVENT
     Dosage: DOSAGE FORM: UNKNOWN, DAILY DOSE TEXT:, UNSPECIFIED
     Route: 065
  3. LANSOPRAZOLE (UNKNOWN) [Suspect]
     Indication: UNEVALUABLE EVENT
     Dosage: DOSAGE FORM: UNKNOWN, DAILY DOSE TEXT:UNSPECIFIED
     Route: 065
  4. SODIUM VALPROATE [Suspect]
     Indication: EPILEPSY
     Dosage: DOSAGE FORM: UNKNOWN, DAILY DOSE TEXT: 6 G, 1 IN, 1 TOTAL
     Route: 065
     Dates: start: 20030808, end: 20030808
  5. CLOZAPINE [Concomitant]
     Indication: PRODUCT USED FOR UNKNOWN INDICATION
     Dosage: DOSAGE FORM : UNKNOW, DAILY DOSE TEXT : UNSPECIFIED.
     Route: 065

REACTIONS (6)
  - Somnolence [Recovered/Resolved]
  - Ataxia [Recovered/Resolved]
  - Feeling hot [Recovered/Resolved]
  - Overdose [Unknown]
  - Hyperhidrosis [Recovered/Resolved]
  - Disturbance in attention [Recovered/Resolved]
